FAERS Safety Report 20176343 (Version 1)
Quarter: 2021Q4

REPORT INFORMATION
  Report Type: Spontaneous
  Country: US (occurrence: None)
  Receive Date: 20211210
  Receipt Date: 20211210
  Transmission Date: 20220304
  Serious: Yes (Hospitalization)
  Sender: FDA-Public Use
  Company Number: None

PATIENT
  Age: 69 Year
  Sex: Female

DRUGS (6)
  1. ORENCIA [Suspect]
     Active Substance: ABATACEPT
     Indication: Rheumatoid arthritis
     Dosage: OTHER FREQUENCY : WEEKLY;?
     Route: 058
     Dates: start: 20180111
  2. TARCEVA [Concomitant]
     Active Substance: ERLOTINIB HYDROCHLORIDE
  3. METHOTREXATE [Concomitant]
     Active Substance: METHOTREXATE
  4. SYNTHROID [Concomitant]
     Active Substance: LEVOTHYROXINE SODIUM
  5. OZEMPIC [Concomitant]
     Active Substance: SEMAGLUTIDE
  6. CLINDAMYCIN [Suspect]
     Active Substance: CLINDAMYCIN

REACTIONS (1)
  - Drug hypersensitivity [None]

NARRATIVE: CASE EVENT DATE: 20211104
